FAERS Safety Report 5705804-0 (Version None)
Quarter: 2008Q2

REPORT INFORMATION
  Report Type: 
  Country: None (occurrence: None)
  Receive Date: 20080414
  Receipt Date: 20080414
  Transmission Date: 20081010
  Serious: Yes (Disabling, Other)
  Sender: FDA-Public Use
  Company Number: None

PATIENT
  Age: 50 Year
  Sex: Male
  Weight: 77.1115 kg

DRUGS (2)
  1. PROVENTIL [Suspect]
     Indication: ASTHMA
     Dosage: 2 PUFFS UP TO 4X/DAY AS NEEDED PO
     Route: 048
     Dates: start: 20080101, end: 20080412
  2. ALBUTEROL SULATE [Suspect]
     Indication: ASTHMA
     Dosage: 2 PUFFS UP TO 4X/DAY AS NEEDED PO
     Route: 048
     Dates: start: 20080101, end: 20080412

REACTIONS (2)
  - DRUG INEFFECTIVE [None]
  - PHARMACEUTICAL PRODUCT COMPLAINT [None]
